FAERS Safety Report 5463320-8 (Version None)
Quarter: 2007Q3

REPORT INFORMATION
  Report Type: 
  Country: None (occurrence: None)
  Receive Date: 20070920
  Receipt Date: 20070917
  Transmission Date: 20080115
  Serious: Yes (Other)
  Sender: FDA-Public Use
  Company Number: PHEH2006US12050

PATIENT

DRUGS (1)
  1. MIACALCIN [Suspect]
     Dates: end: 20000101

REACTIONS (2)
  - BODY HEIGHT DECREASED [None]
  - SPINAL FRACTURE [None]
